FAERS Safety Report 9490820 (Version 2)
Quarter: 2013Q3

REPORT INFORMATION
  Report Type: Spontaneous
  Country: JP (occurrence: JP)
  Receive Date: 20130830
  Receipt Date: 20130902
  Transmission Date: 20140515
  Serious: Yes (Death)
  Sender: FDA-Public Use
  Company Number: JP-JNJFOC-20130815557

PATIENT
  Sex: 0

DRUGS (4)
  1. FINIBAX [Suspect]
     Indication: PNEUMONIA ASPIRATION
     Route: 041
     Dates: start: 20130820, end: 20130820
  2. ELASPOL [Concomitant]
     Indication: PNEUMONIA ASPIRATION
     Route: 065
  3. STEROIDS NOS [Concomitant]
     Indication: PNEUMONIA ASPIRATION
     Route: 065
  4. QUINOLONE [Concomitant]
     Indication: PNEUMONIA ASPIRATION
     Route: 065

REACTIONS (1)
  - Acute respiratory distress syndrome [Fatal]
